FAERS Safety Report 12227189 (Version 1)
Quarter: 2016Q1

REPORT INFORMATION
  Report Type: Spontaneous
  Country: US (occurrence: US)
  Receive Date: 20160331
  Receipt Date: 20160331
  Transmission Date: 20160526
  Serious: Yes (Other)
  Sender: FDA-Public Use
  Company Number: US-GLAXOSMITHKLINE-US2016043147

PATIENT
  Age: 83 Year
  Sex: Female

DRUGS (5)
  1. FLOVENT [Suspect]
     Active Substance: FLUTICASONE PROPIONATE
     Indication: WHEEZING
     Dosage: 1 PUFF(S), BID
     Route: 055
     Dates: start: 2013
  2. REGLAN [Concomitant]
     Active Substance: METOCLOPRAMIDE HYDROCHLORIDE
  3. ACTOS [Concomitant]
     Active Substance: PIOGLITAZONE HYDROCHLORIDE
  4. FLUTICASONE PROPIONATE. [Concomitant]
     Active Substance: FLUTICASONE PROPIONATE
  5. ASPIRIN (BABY) [Concomitant]
     Active Substance: ASPIRIN

REACTIONS (19)
  - Pneumonia [Recovered/Resolved]
  - Erythema [Not Recovered/Not Resolved]
  - Weight decreased [Not Recovered/Not Resolved]
  - Vocal cord disorder [Not Recovered/Not Resolved]
  - Asthenia [Not Recovered/Not Resolved]
  - Surgery [Unknown]
  - Gastric mucosa erythema [Unknown]
  - Vomiting [Recovering/Resolving]
  - Dysphonia [Not Recovered/Not Resolved]
  - Nasal congestion [Not Recovered/Not Resolved]
  - Nausea [Not Recovered/Not Resolved]
  - Gout [Recovered/Resolved]
  - Ear infection [Recovered/Resolved]
  - Bacterial infection [Recovered/Resolved]
  - Malaise [Unknown]
  - Sinus disorder [Not Recovered/Not Resolved]
  - Nervousness [Not Recovered/Not Resolved]
  - Ankle fracture [Unknown]
  - Contusion [Unknown]

NARRATIVE: CASE EVENT DATE: 2013
